FAERS Safety Report 19320514 (Version 1)
Quarter: 2021Q2

REPORT INFORMATION
  Report Type: Spontaneous
  Country: CA (occurrence: CA)
  Receive Date: 20210527
  Receipt Date: 20210527
  Transmission Date: 20210717
  Serious: Yes (Hospitalization)
  Sender: FDA-Public Use
  Company Number: CA-PFIZER INC-2021586121

PATIENT
  Age: 65 Year
  Sex: Female

DRUGS (3)
  1. METHOTREXATE. [Concomitant]
     Active Substance: METHOTREXATE
     Indication: RHEUMATOID ARTHRITIS
     Dosage: DOSAGE UP TO 25MG
     Route: 065
     Dates: start: 20190121
  2. PREDNISONE. [Concomitant]
     Active Substance: PREDNISONE
     Dosage: PREDNISONE (50 MG ) BEING TAPERED
  3. XELJANZ [Suspect]
     Active Substance: TOFACITINIB CITRATE
     Indication: RHEUMATOID ARTHRITIS
     Dosage: 5 MG, 2X/DAY
     Route: 048
     Dates: start: 2021

REACTIONS (11)
  - Therapeutic product effect incomplete [Unknown]
  - Walking aid user [Unknown]
  - Rash erythematous [Unknown]
  - Burning sensation [Unknown]
  - Condition aggravated [Unknown]
  - Wheelchair user [Unknown]
  - Rash macular [Unknown]
  - Peripheral swelling [Unknown]
  - Illness [Unknown]
  - Rash pruritic [Unknown]
  - Loss of personal independence in daily activities [Unknown]

NARRATIVE: CASE EVENT DATE: 20210510
